FAERS Safety Report 7372613-9 (Version None)
Quarter: 2011Q1

REPORT INFORMATION
  Report Type: 
  Country: None (occurrence: None)
  Receive Date: 20110315
  Receipt Date: 20110301
  Transmission Date: 20110831
  Serious: Yes (Death)
  Sender: FDA-Public Use
  Company Number: AE 2010-207

PATIENT
  Age: 54 Year
  Sex: Male
  Weight: 47.6277 kg

DRUGS (13)
  1. FAZACLO ODT 100MG (AZUR PHARMA) [Suspect]
     Indication: SCHIZOPHRENIA
     Dosage: 200 MG DAILY PO
     Route: 048
     Dates: start: 20091011, end: 20100618
  2. BENADRYL [Concomitant]
  3. SPIRVIRA [Concomitant]
  4. ONE-A-DAY VITAMIN [Concomitant]
  5. NASONEX [Concomitant]
  6. AMITRIPTYLINE [Concomitant]
  7. ZOLOFT [Concomitant]
  8. PROPRANOLOL [Concomitant]
  9. ABILIFY [Concomitant]
  10. LORAZEPAM [Concomitant]
  11. ZANTAC [Concomitant]
  12. BENZTROPINE [Concomitant]
  13. PROLIXIN [Concomitant]

REACTIONS (1)
  - ABDOMINAL DISCOMFORT [None]
